FAERS Safety Report 6688140-8 (Version None)
Quarter: 2010Q2

REPORT INFORMATION
  Report Type: 
  Country: None (occurrence: None)
  Receive Date: 20100420
  Receipt Date: 20100413
  Transmission Date: 20101027
  Serious: Yes (Other)
  Sender: FDA-Public Use
  Company Number: DE-PFIZER INC-2010047400

PATIENT
  Sex: Male

DRUGS (2)
  1. REVATIO [Suspect]
     Dosage: 20 MG, 2X/DAY
     Route: 048
     Dates: start: 20100301
  2. HYDROXYCARBAMIDE [Concomitant]
     Dosage: UNK

REACTIONS (1)
  - PLATELET COUNT INCREASED [None]
